FAERS Safety Report 8547873-9 (Version None)
Quarter: 2012Q3

REPORT INFORMATION
  Report Type: 
  Country: None (occurrence: None)
  Receive Date: 20120727
  Receipt Date: 20120713
  Transmission Date: 20120928
  Serious: Yes (Other)
  Sender: FDA-Public Use
  Company Number: JP-SANTEN INC.-INC-12-000193

PATIENT
  Sex: Female

DRUGS (3)
  1. DIQUAFOSOL SODIUM [Suspect]
     Dates: start: 20101201, end: 20110325
  2. LEVOFLOXACIN [Suspect]
     Dosage: 8 GTT
     Route: 031
     Dates: end: 20110331
  3. HYALEIN [Suspect]
     Route: 047
     Dates: start: 20010101, end: 20110331

REACTIONS (2)
  - STEVENS-JOHNSON SYNDROME [None]
  - OCULAR PEMPHIGOID [None]
